FAERS Safety Report 9232175 (Version 2)
Quarter: 2018Q1

REPORT INFORMATION
  Report Type: Report from Study
  Country: US (occurrence: US)
  Receive Date: 20130415
  Receipt Date: 20180330
  Transmission Date: 20180509
  Serious: Yes (Death, Hospitalization, Other)
  Sender: FDA-Public Use
  Company Number: US-BRISTOL-MYERS SQUIBB COMPANY-17316498

PATIENT
  Age: 56 Year
  Sex: Male

DRUGS (17)
  1. PACLITAXEL. [Suspect]
     Active Substance: PACLITAXEL
     Indication: NON-SMALL CELL LUNG CANCER
     Dosage: 359 MG, UNK
     Route: 042
     Dates: start: 20121101, end: 20121228
  2. PROVENTIL [Concomitant]
     Active Substance: ALBUTEROL
     Indication: PRODUCT USED FOR UNKNOWN INDICATION
     Dosage: UNK
     Route: 065
     Dates: start: 20130201
  3. SALINE                             /00075401/ [Concomitant]
     Active Substance: SODIUM CHLORIDE
     Indication: PRODUCT USED FOR UNKNOWN INDICATION
     Dosage: UNK
     Route: 045
     Dates: start: 20121018
  4. ADVAIR HFA [Concomitant]
     Active Substance: FLUTICASONE PROPIONATE\SALMETEROL XINAFOATE
     Indication: PRODUCT USED FOR UNKNOWN INDICATION
     Dosage: UNK
     Route: 065
  5. LORAZEPAM. [Concomitant]
     Active Substance: LORAZEPAM
     Indication: PRODUCT USED FOR UNKNOWN INDICATION
     Dosage: UNK
     Route: 065
     Dates: start: 20121022
  6. ENTOCORT [Concomitant]
     Active Substance: BUDESONIDE
     Indication: PRODUCT USED FOR UNKNOWN INDICATION
     Dosage: STOPPED 05FEB13; RESTARTED 07FEB13-08FEB13
     Route: 065
     Dates: start: 20130129, end: 20130208
  7. CARBOPLATIN. [Suspect]
     Active Substance: CARBOPLATIN
     Indication: NON-SMALL CELL LUNG CANCER
     Dosage: 900 MG, UNK
     Route: 042
     Dates: start: 20121101, end: 20121228
  8. IPRATROPIUM BROMIDE. [Concomitant]
     Active Substance: IPRATROPIUM BROMIDE
     Indication: PRODUCT USED FOR UNKNOWN INDICATION
     Dosage: UNK
     Route: 065
  9. SINGULAIR [Concomitant]
     Active Substance: MONTELUKAST SODIUM
     Indication: PRODUCT USED FOR UNKNOWN INDICATION
     Dosage: UNK
     Route: 065
  10. MUCINEX [Concomitant]
     Active Substance: GUAIFENESIN
     Indication: PRODUCT USED FOR UNKNOWN INDICATION
     Dosage: UNK
     Route: 065
  11. OXYCODONE [Concomitant]
     Active Substance: OXYCODONE
     Indication: PRODUCT USED FOR UNKNOWN INDICATION
     Dosage: UNK
     Route: 065
     Dates: start: 20121105
  12. SPIRIVA [Concomitant]
     Active Substance: TIOTROPIUM BROMIDE MONOHYDRATE
     Indication: PRODUCT USED FOR UNKNOWN INDICATION
     Dosage: UNK
     Route: 065
     Dates: start: 20121018
  13. LEXAPRO [Concomitant]
     Active Substance: ESCITALOPRAM OXALATE
     Indication: PRODUCT USED FOR UNKNOWN INDICATION
     Dosage: UNK
     Route: 065
     Dates: start: 20121122
  14. PRAMIPEXOLE. [Concomitant]
     Active Substance: PRAMIPEXOLE
     Indication: PRODUCT USED FOR UNKNOWN INDICATION
     Dosage: UNK
     Route: 065
     Dates: start: 20121018
  15. IPILIMUMAB [Suspect]
     Active Substance: IPILIMUMAB
     Indication: NON-SMALL CELL LUNG CANCER
     Dosage: 10 UNK, UNK
     Route: 042
     Dates: start: 20121228, end: 20121228
  16. DEXAMETHASONE. [Concomitant]
     Active Substance: DEXAMETHASONE
     Indication: PRODUCT USED FOR UNKNOWN INDICATION
     Dosage: UNK
     Route: 065
     Dates: start: 20121022
  17. LOMOTIL [Concomitant]
     Active Substance: ATROPINE SULFATE\DIPHENOXYLATE HYDROCHLORIDE
     Indication: PRODUCT USED FOR UNKNOWN INDICATION
     Dosage: UNK
     Route: 065
     Dates: start: 20130122

REACTIONS (5)
  - Multiple organ dysfunction syndrome [Fatal]
  - Dysuria [Recovered/Resolved]
  - Sepsis [Fatal]
  - Colitis [Recovered/Resolved]
  - Ileal perforation [Not Recovered/Not Resolved]

NARRATIVE: CASE EVENT DATE: 20130124
